FAERS Safety Report 7008733-8 (Version None)
Quarter: 2010Q3

REPORT INFORMATION
  Report Type: 
  Country: None (occurrence: None)
  Receive Date: 20100921
  Receipt Date: 20100914
  Transmission Date: 20110219
  Serious: Yes (Death, Hospitalization)
  Sender: FDA-Public Use
  Company Number: 2009SP027489

PATIENT
  Age: 66 Year
  Sex: Female
  Weight: 41.8 kg

DRUGS (14)
  1. TEMOZOLOMIDE [Suspect]
     Indication: GLIOBLASTOMA
     Dosage: 100 MG;QD
     Dates: start: 20070801, end: 20071001
  2. RADIOTHERAPY (CON.) [Concomitant]
  3. FORTECORTIN (CON.) [Concomitant]
  4. ATACAND (CON.) [Concomitant]
  5. FEMOSTON (CON.) [Concomitant]
  6. MAGNESIUM (CON.) [Concomitant]
  7. FALKAMIN (CON.) [Concomitant]
  8. URSODEOXYCHOLIC ACID (CON.) [Concomitant]
  9. KONAKION (CON.) [Concomitant]
  10. KALINOR (CON.) [Concomitant]
  11. L-THYROXIN (CON.) [Concomitant]
  12. HYDROCHLORTHIAZIDE (CON.) [Concomitant]
  13. PANTOPRAZOLE (CON.) [Concomitant]
  14. DEXAMETHASONE (CON.) [Concomitant]

REACTIONS (23)
  - AMMONIA INCREASED [None]
  - ANAEMIA [None]
  - BLOOD THYROID STIMULATING HORMONE DECREASED [None]
  - BRAIN HERNIATION [None]
  - CACHEXIA [None]
  - CEREBRAL HAEMORRHAGE [None]
  - CHOLESTASIS [None]
  - DEHYDRATION [None]
  - DRUG TOXICITY [None]
  - GLIOBLASTOMA [None]
  - GRAND MAL CONVULSION [None]
  - HEPATIC ENCEPHALOPATHY [None]
  - HEPATIC NECROSIS [None]
  - HEPATIC STEATOSIS [None]
  - HEPATOSPLENOMEGALY [None]
  - HYPOKALAEMIA [None]
  - HYPONATRAEMIA [None]
  - MANGANESE INCREASED [None]
  - NEOPLASM RECURRENCE [None]
  - PAPILLITIS [None]
  - UNEVALUABLE EVENT [None]
  - VITAMIN B6 DECREASED [None]
  - WEIGHT DECREASED [None]
